FAERS Safety Report 8988944 (Version 1)
Quarter: 2012Q4

REPORT INFORMATION
  Report Type: 
  Country: NL (occurrence: NL)
  Receive Date: 20121228
  Receipt Date: 20121228
  Transmission Date: 20130627
  Serious: Yes (Hospitalization, Other)
  Sender: FDA-Public Use
  Company Number: PHHY2012NL120427

PATIENT
  Sex: Male

DRUGS (3)
  1. ZOMETA [Suspect]
     Indication: PROSTATE CANCER METASTATIC
     Dosage: 4mg / 100ml, once in 28 days
     Route: 042
  2. ZOMETA [Suspect]
     Dosage: 4mg / 100ml, once in 28 days
     Route: 042
     Dates: start: 20120120
  3. MORPHINE [Concomitant]

REACTIONS (4)
  - Infection [Unknown]
  - Metastases to liver [Unknown]
  - Metastases to bladder [Unknown]
  - Terminal state [Unknown]
